FAERS Safety Report 24248907 (Version 1)
Quarter: 2024Q3

REPORT INFORMATION
  Report Type: Spontaneous
  Country: CH (occurrence: CH)
  Receive Date: 20240826
  Receipt Date: 20240826
  Transmission Date: 20241017
  Serious: Yes (Other)
  Sender: PFIZER
  Company Number: None

PATIENT
  Age: 73 Year
  Sex: Male
  Weight: 90 kg

DRUGS (38)
  1. MEROPENEM [Suspect]
     Active Substance: MEROPENEM
     Indication: Pneumonia aspiration
     Dates: start: 20240616, end: 20240617
  2. PIPERACILLIN SODIUM\TAZOBACTAM SODIUM [Suspect]
     Active Substance: PIPERACILLIN SODIUM\TAZOBACTAM SODIUM
     Indication: Pneumonia aspiration
     Dosage: UNK
     Dates: start: 20240606, end: 20240610
  3. PIPERACILLIN SODIUM\TAZOBACTAM SODIUM [Suspect]
     Active Substance: PIPERACILLIN SODIUM\TAZOBACTAM SODIUM
     Dosage: UNK
     Dates: start: 20240614, end: 20240616
  4. ALDACTONE [Suspect]
     Active Substance: SPIRONOLACTONE
     Dosage: 25 MG, 1X/DAY ENTERAL VIA TUBE 1-0-0-0
  5. CEFEPIME HYDROCHLORIDE [Suspect]
     Active Substance: CEFEPIME HYDROCHLORIDE
     Indication: Pneumonia aspiration
     Dates: start: 20240617, end: 20240621
  6. PLAVIX [Suspect]
     Active Substance: CLOPIDOGREL BISULFATE
     Dosage: 75 MG ENTERAL VIA TUBE 1-0-0-0
     Route: 050
     Dates: start: 20240524
  7. AMOXICILLIN\CLAVULANATE POTASSIUM [Suspect]
     Active Substance: AMOXICILLIN\CLAVULANATE POTASSIUM
     Indication: Pneumonia
     Dates: start: 20240524, end: 20240530
  8. AMLODIPINE [Suspect]
     Active Substance: AMLODIPINE BESYLATE
     Dosage: 5 MG, AS NEEDED DAILY
     Route: 048
  9. METOPROLOL [Suspect]
     Active Substance: METOPROLOL
     Dosage: 100 MG, 2X/DAY ENTERAL VIA TUBE
  10. PANTOPRAZOLE SODIUM [Suspect]
     Active Substance: PANTOPRAZOLE SODIUM
     Dosage: 40 MG, DAILY
     Route: 048
  11. QUETIAPINE FUMARATE [Suspect]
     Active Substance: QUETIAPINE FUMARATE
     Dosage: 25 MG, DAILY AS NEEDED
  12. QUETIAPINE FUMARATE [Suspect]
     Active Substance: QUETIAPINE FUMARATE
     Dosage: 75 MG, 1X/DAY ENTERAL VIA TUBE
     Dates: start: 20240610
  13. QUETIAPINE FUMARATE [Suspect]
     Active Substance: QUETIAPINE FUMARATE
     Dosage: UNK
  14. PRONTOLAX [BISACODYL] [Concomitant]
     Dosage: 5 MG, AS NEEDED
     Route: 054
  15. PRONTOLAX [BISACODYL] [Concomitant]
     Dosage: 10 MG, AS NEEDED
     Route: 054
  16. DULCOLAX (BISACODYL) [Concomitant]
     Active Substance: BISACODYL
     Dosage: 5 MG, AS NEEDED
     Route: 054
  17. DULCOLAX (BISACODYL) [Concomitant]
     Active Substance: BISACODYL
     Dosage: 10 MG, AS NEEDED
     Route: 054
  18. IMAZOL [CLOTRIMAZOLE] [Concomitant]
     Dosage: 1 DF, 2X/DAY
     Route: 003
  19. DAPAGLIFLOZIN [Concomitant]
     Active Substance: DAPAGLIFLOZIN
     Dosage: 10 MG, 1X/DAY; 1-0-0-0
  20. ENOXAPARIN SODIUM [Concomitant]
     Active Substance: ENOXAPARIN SODIUM
     Dosage: 80 MG, S.C, 1X/DAY; 0-0-0-1
     Route: 058
  21. ENOXAPARIN SODIUM [Concomitant]
     Active Substance: ENOXAPARIN SODIUM
     Dosage: 100 MG, S.C, 1X/DAY; 1-0-0-0
     Route: 058
  22. ATROVENT [Concomitant]
     Active Substance: IPRATROPIUM BROMIDE
     Dosage: 0.25 MG/ 2 ML 1 DOSE INHALED, 4X/DAY
     Route: 055
  23. ISOSOURCE PROTEIN [Concomitant]
     Dosage: 130 KCAL/ 100 ML TUBE FEEDING ENTERAL VIA TUBE 2300 KCAL/DAY
  24. JOULIE SOL [Concomitant]
     Dosage: 5 ML, 3X/DAY ENTERAL VIA TUBE
  25. POTASSIUM CHLORIDE [Concomitant]
     Active Substance: POTASSIUM CHLORIDE
     Dosage: 1 MMOL/ML 10 MMOL ENTERAL VIA TUBE, 2X/DAY
  26. MELATONIN [Concomitant]
     Active Substance: MELATONIN
     Dosage: RETARD 2 MG 0-0-0-1
  27. MINALGINE [Concomitant]
     Dosage: 500 MG/ML, 1-1-1-1/ AS NEEDED
     Route: 040
     Dates: end: 20240623
  28. MINALGINE [Concomitant]
     Dosage: 500 MG/ML ENTERAL VIA TUBE 1-1-1-1
     Route: 040
  29. MINALGINE [Concomitant]
     Dosage: 500 MG METAMIZOL PER ML
     Route: 050
  30. SODIUM PICOSULFATE [Concomitant]
     Active Substance: SODIUM PICOSULFATE
     Dosage: 7.5 MG/ML 5 MG ENTERAL VIA TUBE 1-0-0-0, 1X/DAY
  31. ROSUVASTATIN [Concomitant]
     Active Substance: ROSUVASTATIN\ROSUVASTATIN CALCIUM
     Dosage: 20 MG, 1X/DAY ENTERAL VIA TUBE 1-0-0-0
  32. ENTRESTO [Concomitant]
     Active Substance: SACUBITRIL\VALSARTAN
     Dosage: 1 DF, 2X/DAY
     Route: 048
  33. ENTRESTO [Concomitant]
     Active Substance: SACUBITRIL\VALSARTAN
     Dosage: UNK
  34. SALBUTAMOL RATIOPHARM [Concomitant]
     Dosage: 1.25 MG/2.5 ML 1.25 MG INHALATIVE , 4X/DAY
     Route: 055
  35. HEPARIN [Concomitant]
     Active Substance: HEPARIN SODIUM
     Dates: start: 20240524
  36. ASPIRIN DL-LYSINE [Concomitant]
     Active Substance: ASPIRIN DL-LYSINE
     Dates: start: 20240524
  37. CANGRELOR [Concomitant]
     Active Substance: CANGRELOR
     Dates: start: 20240524
  38. POTASSIUM CHLORIDE [Concomitant]
     Active Substance: POTASSIUM CHLORIDE
     Dosage: (ISPI) 1 MMOL/ML 10 MMOL ENTERAL VIA TUBE 2X/DAY

REACTIONS (1)
  - Delirium [Recovering/Resolving]

NARRATIVE: CASE EVENT DATE: 20240601
